FAERS Safety Report 25289998 (Version 1)
Quarter: 2025Q2

REPORT INFORMATION
  Report Type: Spontaneous
  Country: GB (occurrence: GB)
  Receive Date: 20250509
  Receipt Date: 20250509
  Transmission Date: 20250717
  Serious: Yes (Hospitalization)
  Sender: ELI LILLY AND COMPANY
  Company Number: None

PATIENT

DRUGS (2)
  1. MOUNJARO [Suspect]
     Active Substance: TIRZEPATIDE
     Indication: Product used for unknown indication
     Route: 065
  2. MOUNJARO [Suspect]
     Active Substance: TIRZEPATIDE
     Indication: Product used for unknown indication
     Route: 065
     Dates: start: 202504

REACTIONS (5)
  - Diarrhoea [Not Recovered/Not Resolved]
  - Abdominal distension [Recovered/Resolved]
  - Gastrooesophageal reflux disease [Unknown]
  - Abdominal pain [Recovered/Resolved]
  - Abdominal discomfort [Recovered/Resolved]
